FAERS Safety Report 8181821-9 (Version None)
Quarter: 2012Q1

REPORT INFORMATION
  Report Type: 
  Country: None (occurrence: None)
  Receive Date: 20120302
  Receipt Date: 20120228
  Transmission Date: 20120608
  Serious: Yes (Hospitalization)
  Sender: FDA-Public Use
  Company Number: US-GILEAD-2012-0050923

PATIENT
  Sex: Female

DRUGS (1)
  1. LETAIRIS [Suspect]
     Indication: PULMONARY HYPERTENSION
     Dosage: 10 MG, UNK
     Route: 048
     Dates: start: 20120120, end: 20120201

REACTIONS (4)
  - RENAL FAILURE [None]
  - DYSPNOEA [None]
  - OEDEMA PERIPHERAL [None]
  - CARDIAC FAILURE [None]
